FAERS Safety Report 10237980 (Version 1)
Quarter: 2014Q2

REPORT INFORMATION
  Report Type: Spontaneous
  Country: US (occurrence: US)
  Receive Date: 20140616
  Receipt Date: 20140616
  Transmission Date: 20141212
  Serious: No
  Sender: FDA-Public Use
  Company Number: US-BIOGENIDEC-2014BI052452

PATIENT
  Age: 54 Year
  Sex: Female

DRUGS (5)
  1. TECFIDERA [Suspect]
     Indication: MULTIPLE SCLEROSIS
     Route: 048
     Dates: start: 20140227
  2. AMANTADINE HCL [Concomitant]
  3. NALTREXONE HCL [Concomitant]
  4. OXYBUTYNIN CHLORIDE ER [Concomitant]
  5. VENLAFAXINE HCL [Concomitant]

REACTIONS (2)
  - Peroneal nerve palsy [Not Recovered/Not Resolved]
  - Muscular weakness [Unknown]
